FAERS Safety Report 16737921 (Version 3)
Quarter: 2019Q3

REPORT INFORMATION
  Report Type: Spontaneous
  Country: US (occurrence: US)
  Receive Date: 20190824
  Receipt Date: 20190913
  Transmission Date: 20191005
  Serious: No
  Sender: FDA-Public Use
  Company Number: US-JNJFOC-20190826781

PATIENT
  Sex: Female
  Weight: 68.1 kg

DRUGS (2)
  1. WOMENS ROGAINE UNSCENTED [Suspect]
     Active Substance: MINOXIDIL
     Dosage: HALF A CUP
     Route: 061
     Dates: start: 20190201, end: 20190731
  2. WOMENS ROGAINE UNSCENTED [Suspect]
     Active Substance: MINOXIDIL
     Indication: ALOPECIA
     Dosage: HALF A CUP
     Route: 061
     Dates: start: 20190201, end: 20190731

REACTIONS (1)
  - Drug ineffective [Unknown]
